FAERS Safety Report 20765593 (Version 1)
Quarter: 2022Q2

REPORT INFORMATION
  Report Type: Spontaneous
  Country: US (occurrence: US)
  Receive Date: 20220428
  Receipt Date: 20220428
  Transmission Date: 20220721
  Serious: No
  Sender: FDA-Public Use
  Company Number: US-SA-SAC20220427000800

PATIENT
  Sex: Female

DRUGS (9)
  1. DUPIXENT [Suspect]
     Active Substance: DUPILUMAB
     Indication: Asthma
     Dosage: 200 MG, QOW
     Route: 058
  2. DUPIXENT [Suspect]
     Active Substance: DUPILUMAB
     Indication: Migraine without aura
  3. DUPIXENT [Suspect]
     Active Substance: DUPILUMAB
     Indication: Status migrainosus
  4. DUPIXENT [Suspect]
     Active Substance: DUPILUMAB
     Indication: Migraine with aura
  5. EXCEDRIN MIGRAINE [Concomitant]
     Active Substance: ACETAMINOPHEN\ASPIRIN\CAFFEINE
  6. TYLENOL [Concomitant]
     Active Substance: ACETAMINOPHEN
  7. FLUTICASONE PROPIONATE [Concomitant]
     Active Substance: FLUTICASONE PROPIONATE
  8. IBUPROFEN [Concomitant]
     Active Substance: IBUPROFEN
  9. TRAMADOL [Concomitant]
     Active Substance: TRAMADOL

REACTIONS (2)
  - Drug ineffective [Unknown]
  - Product use in unapproved indication [Unknown]
